FAERS Safety Report 13353688 (Version 1)
Quarter: 2017Q1

REPORT INFORMATION
  Report Type: Spontaneous
  Country: US (occurrence: US)
  Receive Date: 20170319
  Receipt Date: 20170319
  Transmission Date: 20170429
  Serious: Yes (Other)
  Sender: FDA-Public Use
  Company Number: None

PATIENT
  Age: 57 Year
  Sex: Female
  Weight: 113.8 kg

DRUGS (7)
  1. TROKENDI XR [Concomitant]
     Active Substance: TOPIRAMATE
  2. CALCIUM [Concomitant]
     Active Substance: CALCIUM
  3. VITAMIN D [Concomitant]
     Active Substance: CHOLECALCIFEROL
  4. VITAMIN B2 [Concomitant]
     Active Substance: RIBOFLAVIN
  5. BOTOX [Suspect]
     Active Substance: ONABOTULINUMTOXINA
     Indication: MIGRAINE
     Dosage: NJECTION;OTHER ROUTE:20 INJECTION SITES?
     Dates: start: 20170309, end: 20170309
  6. MAGNESIUM [Concomitant]
     Active Substance: MAGNESIUM
  7. COQ10 [Concomitant]
     Active Substance: UBIDECARENONE

REACTIONS (1)
  - Facial paralysis [None]

NARRATIVE: CASE EVENT DATE: 20170313
